FAERS Safety Report 8304175-3 (Version None)
Quarter: 2012Q2

REPORT INFORMATION
  Report Type: 
  Country: None (occurrence: None)
  Receive Date: 20120423
  Receipt Date: 20120409
  Transmission Date: 20120825
  Serious: No
  Sender: FDA-Public Use
  Company Number: US-JNJFOC-20120404064

PATIENT
  Sex: Female
  Weight: 63.5 kg

DRUGS (11)
  1. DURAGESIC-100 [Suspect]
     Indication: OSTEOPOROSIS
     Route: 062
  2. DURAGESIC-100 [Suspect]
     Indication: RHEUMATOID ARTHRITIS
     Route: 062
  3. FENTANYL [Suspect]
     Indication: INTERVERTEBRAL DISC DEGENERATION
     Route: 065
  4. FENTANYL [Suspect]
     Indication: OSTEOPOROSIS
     Route: 065
  5. DURAGESIC-100 [Suspect]
     Indication: BACK DISORDER
     Route: 062
  6. FENTANYL [Suspect]
     Indication: RHEUMATOID ARTHRITIS
     Route: 065
  7. DURAGESIC-100 [Suspect]
     Indication: ARTHROPATHY
     Route: 062
  8. FENTANYL [Suspect]
     Indication: ARTHROPATHY
     Route: 065
  9. FENTANYL [Suspect]
     Indication: BACK DISORDER
     Route: 065
  10. DURAGESIC-100 [Suspect]
     Indication: INTERVERTEBRAL DISC DEGENERATION
     Route: 062
  11. UNKNOWN MEDICATION [Concomitant]
     Indication: RHEUMATOID ARTHRITIS
     Route: 048

REACTIONS (6)
  - THERAPEUTIC RESPONSE UNEXPECTED WITH DRUG SUBSTITUTION [None]
  - INSOMNIA [None]
  - INJURY [None]
  - WRONG TECHNIQUE IN DRUG USAGE PROCESS [None]
  - THERAPEUTIC RESPONSE DECREASED [None]
  - PRODUCT QUALITY ISSUE [None]
